FAERS Safety Report 4590083-0 (Version None)
Quarter: 2005Q1

REPORT INFORMATION
  Report Type: 
  Country: None (occurrence: None)
  Receive Date: 20050217
  Receipt Date: 20050217
  Transmission Date: 20050727
  Serious: Yes (Other)
  Sender: FDA-Public Use
  Company Number: None

PATIENT
  Age: 97 Year
  Sex: Male
  Weight: 66.2 kg

DRUGS (19)
  1. OXYCODONE HCL AND ACETAMINOPHEN [Suspect]
  2. ACETAMINOPHEN [Concomitant]
  3. CAPSAICIN [Concomitant]
  4. LUBRICATING OPH OINT [Concomitant]
  5. SODIUM CHLORIDE 0.9% [Concomitant]
  6. VITAMIN E [Concomitant]
  7. ASCORBIC ACID [Concomitant]
  8. NITROGLYCERIN [Concomitant]
  9. ALOH/MGOH/SMITH XTRA STRENGTH [Concomitant]
  10. MILK OF MAGNESIA [Concomitant]
  11. HYPROMELLOSE [Concomitant]
  12. EUCERIN LOTION [Concomitant]
  13. SENNA [Concomitant]
  14. PAROXETINE [Concomitant]
  15. PAROXETINE [Concomitant]
  16. OMEPRAZOLE [Concomitant]
  17. FUROSEMIDE [Concomitant]
  18. ATENOLOL [Concomitant]
  19. ASPIRIN [Concomitant]

REACTIONS (1)
  - ABNORMAL DREAMS [None]
